FAERS Safety Report 4605869-3 (Version None)
Quarter: 2005Q2

REPORT INFORMATION
  Report Type: 
  Country: None (occurrence: None)
  Receive Date: 20050303
  Receipt Date: 20050127
  Transmission Date: 20051028
  Serious: No
  Sender: FDA-Public Use
  Company Number: 200510127BWH

PATIENT
  Age: 81 Year
  Sex: Male

DRUGS (6)
  1. LEVITRA [Suspect]
     Indication: ERECTILE DYSFUNCTION
     Dosage: 10 MG, TOTAL DAILY, ORAL
     Route: 048
     Dates: start: 20050118, end: 20050122
  2. SOTALOL HCL [Concomitant]
  3. LANOXIN [Concomitant]
  4. ZOCOR [Concomitant]
  5. COMADIN [Concomitant]
  6. TUMS [Concomitant]

REACTIONS (1)
  - ERECTILE DYSFUNCTION [None]
